FAERS Safety Report 17516837 (Version 1)
Quarter: 2020Q1

REPORT INFORMATION
  Report Type: Spontaneous
  Country: US (occurrence: US)
  Receive Date: 20200228
  Receipt Date: 20200228
  Transmission Date: 20200409
  Serious: Yes (Hospitalization)
  Sender: FDA-Public Use
  Company Number: None

PATIENT
  Age: 48 Year
  Sex: Female

DRUGS (9)
  1. PANTOPRAZOLE [Concomitant]
     Active Substance: PANTOPRAZOLE
  2. ALPRAZOLAM. [Concomitant]
     Active Substance: ALPRAZOLAM
  3. ONDANSETRON [Concomitant]
     Active Substance: ONDANSETRON
  4. TOPIRAMATE. [Concomitant]
     Active Substance: TOPIRAMATE
  5. BENLYSTA [Suspect]
     Active Substance: BELIMUMAB
     Indication: SYSTEMIC LUPUS ERYTHEMATOSUS
     Dosage: ?          OTHER FREQUENCY:Q7DAYS;?
     Route: 058
     Dates: start: 20180214
  6. ATORVASTATIN [Concomitant]
     Active Substance: ATORVASTATIN
  7. SERTRALINE [Concomitant]
     Active Substance: SERTRALINE HYDROCHLORIDE
  8. ELIQUIS [Concomitant]
     Active Substance: APIXABAN
  9. LORAZEPAM. [Concomitant]
     Active Substance: LORAZEPAM

REACTIONS (2)
  - Malaise [None]
  - Dehydration [None]

NARRATIVE: CASE EVENT DATE: 20200225
